FAERS Safety Report 9871803 (Version 3)
Quarter: 2014Q2

REPORT INFORMATION
  Report Type: Spontaneous
  Country: JP (occurrence: JP)
  Receive Date: 20140205
  Receipt Date: 20140430
  Transmission Date: 20141212
  Serious: No
  Sender: FDA-Public Use
  Company Number: JP-B.I. PHARMACEUTICALS,INC./RIDGEFIELD-2014-BI-04822NB

PATIENT
  Age: 87 Year
  Sex: Male

DRUGS (4)
  1. PRAZAXA [Suspect]
     Indication: ATRIAL FIBRILLATION
     Dosage: 220 MG
     Route: 048
  2. TAKEPRON / LANSOPRAZOLE [Concomitant]
     Route: 065
  3. DIART / AZOSEMIDE [Concomitant]
     Route: 065
  4. MUCOSOLVAN / AMBROXOL HYDROCHLORIDE [Concomitant]
     Route: 065

REACTIONS (2)
  - Stomatitis [Not Recovered/Not Resolved]
  - Wrong technique in drug usage process [Unknown]
